FAERS Safety Report 10018641 (Version 2)
Quarter: 2014Q1

REPORT INFORMATION
  Report Type: Spontaneous
  Country: JP (occurrence: JP)
  Receive Date: 20140318
  Receipt Date: 20140327
  Transmission Date: 20141002
  Serious: Yes (Life-Threatening, Other)
  Sender: FDA-Public Use
  Company Number: JP-009507513-1403JPN007771

PATIENT
  Age: 86 Year
  Sex: Female
  Weight: 35 kg

DRUGS (1)
  1. JANUVIA TABLETS 50MG [Suspect]
     Indication: DIABETES MELLITUS
     Dosage: 50 MG, ONCE A DAY
     Route: 048
     Dates: start: 20140217, end: 20140304

REACTIONS (1)
  - Hypoglycaemia [Recovering/Resolving]
